FAERS Safety Report 13113516 (Version 1)
Quarter: 2017Q1

REPORT INFORMATION
  Report Type: Spontaneous
  Country: US (occurrence: US)
  Receive Date: 20170113
  Receipt Date: 20170113
  Transmission Date: 20170428
  Serious: Yes (Hospitalization)
  Sender: FDA-Public Use
  Company Number: None

PATIENT
  Age: 74 Year
  Sex: Male
  Weight: 118.2 kg

DRUGS (2)
  1. DRONEDARONE [Suspect]
     Active Substance: DRONEDARONE
     Route: 048
  2. RIVAROXABAN [Suspect]
     Active Substance: RIVAROXABAN
     Indication: ATRIAL FIBRILLATION
     Route: 048
     Dates: start: 20160901, end: 20161012

REACTIONS (10)
  - Abdominal pain upper [None]
  - Gastric haemorrhage [None]
  - Melaena [None]
  - Diverticulum [None]
  - Haemoglobin decreased [None]
  - Drug interaction [None]
  - Blood creatinine increased [None]
  - Haematocrit decreased [None]
  - Large intestine polyp [None]
  - Anal polyp [None]

NARRATIVE: CASE EVENT DATE: 20161012
